FAERS Safety Report 9338354 (Version 1)
Quarter: 2013Q2

REPORT INFORMATION
  Report Type: Spontaneous
  Country: US (occurrence: US)
  Receive Date: 20130610
  Receipt Date: 20130610
  Transmission Date: 20140414
  Serious: No
  Sender: FDA-Public Use
  Company Number: US-PFIZER INC-2013173306

PATIENT
  Sex: 0

DRUGS (1)
  1. SUTENT [Suspect]
     Indication: METASTATIC RENAL CELL CARCINOMA
     Dosage: 50 MG, CYCLIC, 4 WEEKS ON THERAPY AND 2 WEEKS OFF

REACTIONS (1)
  - Palmar-plantar erythrodysaesthesia syndrome [Unknown]
